FAERS Safety Report 9782259 (Version 7)
Quarter: 2014Q1

REPORT INFORMATION
  Report Type: Spontaneous
  Country: US (occurrence: US)
  Receive Date: 20131226
  Receipt Date: 20140327
  Transmission Date: 20141002
  Serious: Yes (Hospitalization)
  Sender: FDA-Public Use
  Company Number: US-JNJFOC-20131211182

PATIENT
  Age: 91 Year
  Sex: Female
  Weight: 73.94 kg

DRUGS (13)
  1. XARELTO [Suspect]
     Indication: CEREBROVASCULAR ACCIDENT PROPHYLAXIS
     Route: 048
     Dates: start: 20130827, end: 20130920
  2. BABY ASPIRIN [Suspect]
     Indication: CARDIAC DISORDER
     Route: 048
  3. ATORVASTATIN [Concomitant]
     Indication: BLOOD CHOLESTEROL
     Route: 048
  4. GLIPIZIDE [Concomitant]
     Indication: DIABETES MELLITUS
     Route: 048
  5. LISINOPRIL [Concomitant]
     Indication: BLOOD PRESSURE
     Route: 048
  6. METFORMIN [Concomitant]
     Indication: DIABETES MELLITUS
     Route: 048
  7. METOPROLOL [Concomitant]
     Route: 048
  8. NITROGLYCERIN [Concomitant]
     Indication: CARDIAC DISORDER
     Route: 048
  9. OXYBUTYNIN [Concomitant]
     Route: 048
  10. PANTOPRAZOLE [Concomitant]
     Route: 048
  11. JANUVIA [Concomitant]
     Indication: DIABETES MELLITUS
     Route: 048
  12. PEPCID [Concomitant]
     Route: 065
     Dates: start: 20130921
  13. PROPAFENONE [Concomitant]
     Route: 065

REACTIONS (4)
  - Cerebral infarction [Recovering/Resolving]
  - Haematochezia [Recovered/Resolved]
  - Gastric haemorrhage [Recovered/Resolved]
  - Haemoglobin decreased [Recovering/Resolving]
